FAERS Safety Report 16640868 (Version 1)
Quarter: 2019Q3

REPORT INFORMATION
  Report Type: Spontaneous
  Country: US (occurrence: US)
  Receive Date: 20190729
  Receipt Date: 20190729
  Transmission Date: 20191004
  Serious: No
  Sender: FDA-Public Use
  Company Number: US-MACLEODS PHARMACEUTICALS US LTD-MAC2019022215

PATIENT

DRUGS (2)
  1. ARIPIPRAZOLE 5MG TABLET [Suspect]
     Active Substance: ARIPIPRAZOLE
     Indication: BIPOLAR DISORDER
     Dosage: 5 MILLIGRAM TABLET, QD
     Route: 048
  2. ARIPIPRAZOLE 5MG TABLET [Suspect]
     Active Substance: ARIPIPRAZOLE
     Dosage: 10 MG TABLET
     Route: 048

REACTIONS (3)
  - Feeling abnormal [Unknown]
  - Headache [Unknown]
  - Dizziness [Unknown]
